FAERS Safety Report 14487253 (Version 2)
Quarter: 2018Q1

REPORT INFORMATION
  Report Type: Spontaneous
  Country: US (occurrence: US)
  Receive Date: 20180205
  Receipt Date: 20180309
  Transmission Date: 20180509
  Serious: Yes (Death)
  Sender: FDA-Public Use
  Company Number: US-JNJFOC-20180202082

PATIENT

DRUGS (1)
  1. PROPULSID [Suspect]
     Active Substance: CISAPRIDE
     Indication: DYSPEPSIA
     Route: 065

REACTIONS (6)
  - Arrhythmia [Unknown]
  - Product label confusion [Unknown]
  - Off label use [Unknown]
  - Cardiac disorder [Unknown]
  - Death [Fatal]
  - Drug prescribing error [Unknown]
